FAERS Safety Report 20982891 (Version 3)
Quarter: 2022Q3

REPORT INFORMATION
  Report Type: Spontaneous
  Country: BR (occurrence: BR)
  Receive Date: 20220620
  Receipt Date: 20220624
  Transmission Date: 20221026
  Serious: Yes (Other)
  Sender: FDA-Public Use
  Company Number: BR-NOVARTISPH-NVSC2022BR140787

PATIENT
  Age: 39 Year
  Sex: Male

DRUGS (1)
  1. TEGRETOL XR [Suspect]
     Active Substance: CARBAMAZEPINE
     Indication: Product used for unknown indication
     Dosage: 1 DOSAGE FORM (400 MG)
     Route: 065

REACTIONS (4)
  - Seizure [Unknown]
  - Head injury [Unknown]
  - Malaise [Unknown]
  - Product supply issue [Unknown]
